FAERS Safety Report 10014152 (Version 2)
Quarter: 2014Q1

REPORT INFORMATION
  Report Type: Spontaneous
  Country: US (occurrence: US)
  Receive Date: 20140317
  Receipt Date: 20140331
  Transmission Date: 20141002
  Serious: Yes (Hospitalization)
  Sender: FDA-Public Use
  Company Number: US-BIOGENIDEC-2014BI023706

PATIENT
  Sex: Female

DRUGS (4)
  1. AVONEX [Suspect]
     Indication: PRODUCT USED FOR UNKNOWN INDICATION
     Route: 030
  2. AMPYRA [Concomitant]
     Route: 048
     Dates: start: 20111014, end: 201402
  3. MORPHINE [Concomitant]
     Indication: PAIN
     Route: 048
  4. VICODIN [Concomitant]
     Indication: PAIN

REACTIONS (1)
  - Oedema peripheral [Not Recovered/Not Resolved]
